FAERS Safety Report 9738789 (Version 2)
Quarter: 2014Q1

REPORT INFORMATION
  Report Type: Spontaneous
  Country: US (occurrence: US)
  Receive Date: 20131209
  Receipt Date: 20140210
  Transmission Date: 20141002
  Serious: No
  Sender: FDA-Public Use
  Company Number: US-PFIZER INC-2013349854

PATIENT
  Age: 53 Year
  Sex: Female
  Weight: 62.6 kg

DRUGS (2)
  1. LYRICA [Suspect]
     Indication: FIBROMYALGIA
     Dosage: 75 MG, 1X/DAY
     Dates: start: 20131203
  2. LYRICA [Suspect]
     Dosage: 75 MG, UNK

REACTIONS (2)
  - Dizziness [Unknown]
  - Drug intolerance [Unknown]
